FAERS Safety Report 8607717-3 (Version None)
Quarter: 2012Q3

REPORT INFORMATION
  Report Type: 
  Country: None (occurrence: None)
  Receive Date: 20120821
  Receipt Date: 20120815
  Transmission Date: 20120928
  Serious: Yes (Other)
  Sender: FDA-Public Use
  Company Number: US-PFIZER INC-2012200049

PATIENT
  Age: 46 Year
  Sex: Female
  Weight: 53.061 kg

DRUGS (4)
  1. VALIUM [Concomitant]
     Dosage: UNK
  2. CELEXA [Concomitant]
     Dosage: UNK
  3. RESTORIL [Concomitant]
     Indication: SLEEP DISORDER
     Dosage: UNK
  4. LYRICA [Suspect]
     Indication: FIBROMYALGIA
     Dosage: 150 MG, 3X/DAY
     Route: 048
     Dates: end: 20120401

REACTIONS (2)
  - WEIGHT DECREASED [None]
  - PAIN [None]
